FAERS Safety Report 21251490 (Version 1)
Quarter: 2022Q3

REPORT INFORMATION
  Report Type: Spontaneous
  Country: US (occurrence: US)
  Receive Date: 20220825
  Receipt Date: 20220825
  Transmission Date: 20221026
  Serious: No
  Sender: FDA-Public Use
  Company Number: US-UNITED THERAPEUTICS-UNT-2022-019050

PATIENT
  Age: 43 Year
  Sex: Female

DRUGS (2)
  1. REMODULIN [Suspect]
     Active Substance: TREPROSTINIL
     Indication: Pulmonary arterial hypertension
     Dosage: UNK, CONTINUING
     Route: 041
     Dates: start: 20210317
  2. REMODULIN [Suspect]
     Active Substance: TREPROSTINIL
     Dosage: 0.154 ?G/KG, CONTINUING (PUMP RATE OF  46 ML/24HR)
     Route: 041

REACTIONS (4)
  - Dyspnoea [Unknown]
  - Device use issue [Recovered/Resolved]
  - Device alarm issue [Recovered/Resolved]
  - Device power source issue [Recovered/Resolved]

NARRATIVE: CASE EVENT DATE: 20220818
